FAERS Safety Report 12528420 (Version 3)
Quarter: 2016Q3

REPORT INFORMATION
  Report Type: Spontaneous
  Country: JP (occurrence: JP)
  Receive Date: 20160705
  Receipt Date: 20160928
  Transmission Date: 20161109
  Serious: Yes (Other)
  Sender: FDA-Public Use
  Company Number: JP-AMGEN-JPNSP2016085718

PATIENT
  Age: 71 Year
  Sex: Female

DRUGS (5)
  1. BONOTEO [Concomitant]
     Active Substance: MINODRONIC ACID
     Dosage: UNK UNK, UNK
  2. PREDNISOLONE. [Concomitant]
     Active Substance: PREDNISOLONE
     Dosage: UNK UNK, UNK
  3. ENBREL [Suspect]
     Active Substance: ETANERCEPT
     Indication: RHEUMATOID ARTHRITIS
     Dosage: 25 MG, 1X 2WEEKLY
     Route: 058
  4. CELECOX [Concomitant]
     Active Substance: CELECOXIB
     Dosage: UNK UNK, UNK
  5. MUCOSTA [Concomitant]
     Active Substance: REBAMIPIDE
     Dosage: UNK UNK, UNK

REACTIONS (2)
  - Benign neoplasm [Recovered/Resolved]
  - Product use issue [Unknown]

NARRATIVE: CASE EVENT DATE: 201606
